FAERS Safety Report 16021747 (Version 1)
Quarter: 2019Q1

REPORT INFORMATION
  Report Type: Spontaneous
  Country: US (occurrence: US)
  Receive Date: 20190205
  Receipt Date: 20190205
  Transmission Date: 20190418
  Serious: No
  Sender: FDA-Public Use
  Company Number: None

PATIENT

DRUGS (1)
  1. CERAZETTE 75MG TABLETS [Suspect]
     Active Substance: DESOGESTREL

REACTIONS (2)
  - Product dispensing error [None]
  - Drug monitoring procedure incorrectly performed [None]
